FAERS Safety Report 19739115 (Version 1)
Quarter: 2021Q3

REPORT INFORMATION
  Report Type: Spontaneous
  Country: US (occurrence: US)
  Receive Date: 20210824
  Receipt Date: 20210824
  Transmission Date: 20211014
  Serious: Yes (Hospitalization, Other)
  Sender: FDA-Public Use
  Company Number: US-PFIZER INC-202101034630

PATIENT

DRUGS (3)
  1. TOCILIZUMAB. [Suspect]
     Active Substance: TOCILIZUMAB
     Dosage: UNK
  2. REMDESIVIR. [Concomitant]
     Active Substance: REMDESIVIR
  3. XELJANZ [Suspect]
     Active Substance: TOFACITINIB CITRATE
     Indication: RHEUMATOID ARTHRITIS
     Dosage: 10 MG

REACTIONS (5)
  - Condition aggravated [Unknown]
  - Inflammation [Unknown]
  - Off label use [Unknown]
  - COVID-19 [Unknown]
  - Product use issue [Unknown]
